FAERS Safety Report 5491176-6 (Version None)
Quarter: 2007Q4

REPORT INFORMATION
  Report Type: 
  Country: None (occurrence: None)
  Receive Date: 20071019
  Receipt Date: 20071009
  Transmission Date: 20080405
  Serious: Yes (Other)
  Sender: FDA-Public Use
  Company Number: US-PFIZER INC-2007085321

PATIENT
  Sex: Female
  Weight: 62.6 kg

DRUGS (3)
  1. CHANTIX [Suspect]
     Indication: SMOKING CESSATION THERAPY
     Route: 048
     Dates: start: 20070927, end: 20071005
  2. AMOXICILLIN [Suspect]
     Indication: PNEUMONIA
     Dates: start: 20070101, end: 20071005
  3. ULTRAM [Suspect]
     Indication: PNEUMONIA
     Dates: start: 20070101, end: 20071005

REACTIONS (3)
  - AMNESIA [None]
  - DAYDREAMING [None]
  - FLIGHT OF IDEAS [None]
